FAERS Safety Report 7579549-9 (Version None)
Quarter: 2011Q2

REPORT INFORMATION
  Report Type: 
  Country: None (occurrence: None)
  Receive Date: 20110622
  Receipt Date: 20110607
  Transmission Date: 20111010
  Serious: Yes (Life-Threatening, Other)
  Sender: FDA-Public Use
  Company Number: 2011MA006906

PATIENT
  Age: 43 Year
  Sex: Female

DRUGS (5)
  1. TRIAMCINOLONE ACETONIDE [Suspect]
     Dosage: 20 MG
     Dates: start: 20051201, end: 20051201
  2. NEFAZODONE [Concomitant]
  3. ESTROGENIC SUBSTANCE [Concomitant]
  4. PREGABALIN [Concomitant]
  5. OXAZEPAM [Concomitant]

REACTIONS (3)
  - ADRENAL INSUFFICIENCY [None]
  - CUSHING'S SYNDROME [None]
  - DRUG INTERACTION [None]
